FAERS Safety Report 12611505 (Version 1)
Quarter: 2016Q3

REPORT INFORMATION
  Report Type: Spontaneous
  Country: US (occurrence: US)
  Receive Date: 20160801
  Receipt Date: 20160801
  Transmission Date: 20161109
  Serious: Yes (Other)
  Sender: FDA-Public Use
  Company Number: US-BAUSCH-BL-2016-018146

PATIENT
  Age: 44 Year
  Sex: Female

DRUGS (1)
  1. MOVIPREP [Suspect]
     Active Substance: ASCORBIC ACID\POLYETHYLENE GLYCOL 3350\POTASSIUM CHLORIDE\SODIUM ASCORBATE\SODIUM CHLORIDE\SODIUM SULFATE
     Indication: INTESTINAL OBSTRUCTION
     Route: 048
     Dates: start: 201405, end: 201405

REACTIONS (4)
  - Intestinal perforation [Recovered/Resolved]
  - Sepsis [Unknown]
  - Off label use [Unknown]
  - Vomiting [Recovered/Resolved]

NARRATIVE: CASE EVENT DATE: 201405
